FAERS Safety Report 15928497 (Version 1)
Quarter: 2019Q1

REPORT INFORMATION
  Report Type: Spontaneous
  Country: ES (occurrence: ES)
  Receive Date: 20190206
  Receipt Date: 20190206
  Transmission Date: 20190417
  Serious: Yes (Other)
  Sender: FDA-Public Use
  Company Number: ES-SA-2019SA031476

PATIENT
  Age: 64 Year
  Sex: Female

DRUGS (2)
  1. GLICLAZIDE [Interacting]
     Active Substance: GLICLAZIDE
     Dosage: UNK
     Route: 065
  2. TOUJEO [Suspect]
     Active Substance: INSULIN GLARGINE
     Indication: DIABETES MELLITUS
     Dosage: UNK
     Route: 065

REACTIONS (3)
  - Blood glucose decreased [Unknown]
  - Drug interaction [Unknown]
  - Hallucination [Not Recovered/Not Resolved]
